FAERS Safety Report 14152308 (Version 4)
Quarter: 2017Q4

REPORT INFORMATION
  Report Type: Report from Study
  Country: US (occurrence: US)
  Receive Date: 20171102
  Receipt Date: 20171120
  Transmission Date: 20180321
  Serious: No
  Sender: FDA-Public Use
  Company Number: US-AMGEN-USASP2017164958

PATIENT
  Age: 39 Year
  Sex: Female
  Weight: 55.78 kg

DRUGS (1)
  1. ENBREL [Suspect]
     Active Substance: ETANERCEPT
     Indication: RHEUMATOID ARTHRITIS
     Dosage: UNK UNK, QWK
     Route: 058
     Dates: start: 2012

REACTIONS (5)
  - Influenza [Recovered/Resolved]
  - Pain in extremity [Recovering/Resolving]
  - Malaise [Recovering/Resolving]
  - Therapy non-responder [Unknown]
  - Wrong technique in product usage process [Unknown]
